FAERS Safety Report 5702528-0 (Version None)
Quarter: 2008Q2

REPORT INFORMATION
  Report Type: 
  Country: None (occurrence: None)
  Receive Date: 20080411
  Receipt Date: 20071005
  Transmission Date: 20081010
  Serious: No
  Sender: FDA-Public Use
  Company Number: US-ASTRAZENECA-2007UW18214

PATIENT
  Age: 50 Year
  Sex: Female
  Weight: 55.3 kg

DRUGS (6)
  1. TENORMIN [Suspect]
     Route: 048
     Dates: start: 19870101, end: 20070101
  2. TENORMIN [Suspect]
     Route: 048
     Dates: start: 20070101
  3. ZANTAC [Concomitant]
  4. MULTI-VITAMIN [Concomitant]
  5. ASPIRIN [Concomitant]
  6. FIORICET [Concomitant]

REACTIONS (5)
  - DRUG INEFFECTIVE [None]
  - DYSPNOEA [None]
  - FATIGUE [None]
  - HEART RATE INCREASED [None]
  - PALPITATIONS [None]
